FAERS Safety Report 6457298-8 (Version None)
Quarter: 2009Q4

REPORT INFORMATION
  Report Type: 
  Country: None (occurrence: None)
  Receive Date: 20091125
  Receipt Date: 20091117
  Transmission Date: 20100525
  Serious: Yes (Hospitalization, Other)
  Sender: FDA-Public Use
  Company Number: GB-PFIZER INC-2009298560

PATIENT
  Age: 30 Year

DRUGS (1)
  1. CHAMPIX [Suspect]
     Dosage: UNK
     Route: 048
     Dates: start: 20090704, end: 20090827

REACTIONS (3)
  - AGGRESSION [None]
  - ANGER [None]
  - DEPRESSION [None]
